FAERS Safety Report 24327654 (Version 4)
Quarter: 2024Q4

REPORT INFORMATION
  Report Type: Spontaneous
  Country: US (occurrence: US)
  Receive Date: 20240917
  Receipt Date: 20241028
  Transmission Date: 20250115
  Serious: Yes (Death, Other)
  Sender: BIOVITRUM
  Company Number: US-BIOVITRUM-2024-US-012088

PATIENT
  Age: 68 Year
  Sex: Male

DRUGS (1)
  1. VONJO [Suspect]
     Active Substance: PACRITINIB
     Indication: Myelodysplastic syndrome
     Dosage: TAKE 2 CAPSULES TWICE DAILY
     Route: 048
     Dates: start: 20240905

REACTIONS (9)
  - Off label use [Recovered/Resolved]
  - Musculoskeletal pain [Unknown]
  - Musculoskeletal chest pain [Unknown]
  - Back pain [Unknown]
  - Insomnia [Unknown]
  - Skin ulcer [Unknown]
  - Fall [Unknown]
  - Loss of personal independence in daily activities [Unknown]
  - Death [Fatal]

NARRATIVE: CASE EVENT DATE: 20240905
